FAERS Safety Report 6210944-6 (Version None)
Quarter: 2009Q2

REPORT INFORMATION
  Report Type: 
  Country: None (occurrence: None)
  Receive Date: 20090601
  Receipt Date: 20090520
  Transmission Date: 20091009
  Serious: Yes (Hospitalization, Disabling)
  Sender: FDA-Public Use
  Company Number: NO-ABBOTT-09P-122-0575025-00

PATIENT
  Sex: Female

DRUGS (2)
  1. REDUCTIL 10MG [Suspect]
     Indication: WEIGHT DECREASED
     Route: 048
     Dates: start: 20080901, end: 20090401
  2. LEVONORGESTREL [Concomitant]
     Indication: CONTRACEPTION
     Dosage: INTRA-UTERINE
     Dates: start: 20080501

REACTIONS (6)
  - CEREBRAL INFARCTION [None]
  - DIPLOPIA [None]
  - DIZZINESS [None]
  - FALL [None]
  - HYPOAESTHESIA [None]
  - NAUSEA [None]
